FAERS Safety Report 4733236-0 (Version None)
Quarter: 2005Q3

REPORT INFORMATION
  Report Type: 
  Country: None (occurrence: None)
  Receive Date: 20050803
  Receipt Date: 20050414
  Transmission Date: 20060218
  Serious: Yes (Death, Other)
  Sender: FDA-Public Use
  Company Number: PHEH2005US04376

PATIENT
  Age: 45 Year
  Sex: Female
  Weight: 104 kg

DRUGS (11)
  1. CAMPTOSAR [Concomitant]
     Dosage: 175 MG, UNK
  2. ATIVAN [Concomitant]
     Indication: ANXIETY
     Dosage: UNK MG, UNK
     Route: 048
     Dates: start: 20050328
  3. OXYCODONE HCL [Concomitant]
     Indication: PAIN
     Dosage: 15 MG, Q12H
     Route: 048
     Dates: start: 20050328
  4. DEXAMETHASONE [Concomitant]
     Dosage: 10 MG, QW
     Route: 042
     Dates: start: 20040914, end: 20050404
  5. PROCRIT [Concomitant]
     Indication: ANAEMIA
     Dosage: 40000 IU, QW
     Route: 058
  6. COUMADIN [Concomitant]
     Indication: DEEP VEIN THROMBOSIS
     Dosage: 3 MG, QD
     Route: 048
     Dates: start: 20050215
  7. PHENYTOIN [Concomitant]
     Dosage: 100 MG, QID
     Route: 048
  8. PHENYTOIN [Concomitant]
     Dosage: 100 MG, QID
     Route: 048
  9. PHENYTOIN [Concomitant]
     Dosage: 100 MG, QID
     Route: 048
  10. ZOLEDRONATE [Suspect]
     Indication: METASTASES TO BONE
     Dosage: UNK, UNK
     Route: 042
     Dates: start: 20020430, end: 20050207
  11. TAXOTERE [Concomitant]

REACTIONS (10)
  - ALOPECIA [None]
  - BONE DISORDER [None]
  - BREATH SOUNDS ABNORMAL [None]
  - DEATH [None]
  - MALIGNANT NEOPLASM PROGRESSION [None]
  - OEDEMA PERIPHERAL [None]
  - OPEN WOUND [None]
  - PAIN IN JAW [None]
  - PERIOSTITIS [None]
  - SWELLING [None]
